FAERS Safety Report 6451055-4 (Version None)
Quarter: 2009Q4

REPORT INFORMATION
  Report Type: 
  Country: None (occurrence: None)
  Receive Date: 20091123
  Receipt Date: 20091117
  Transmission Date: 20100525
  Serious: Yes (Disabling)
  Sender: FDA-Public Use
  Company Number: GXKR2006GB06448

PATIENT
  Age: 34 Year
  Sex: Female

DRUGS (1)
  1. CIPROFLOXACIN [Suspect]
     Indication: UPPER RESPIRATORY TRACT INFECTION
     Dosage: 1 G, BID
     Route: 048
     Dates: start: 20060725

REACTIONS (2)
  - VERTIGO [None]
  - VISUAL IMPAIRMENT [None]
